FAERS Safety Report 25612339 (Version 2)
Quarter: 2025Q3

REPORT INFORMATION
  Report Type: Report from Study
  Country: US (occurrence: US)
  Receive Date: 20250728
  Receipt Date: 20250819
  Transmission Date: 20251020
  Serious: No
  Sender: PFIZER
  Company Number: US-PFIZER INC-202500128619

PATIENT
  Age: 77 Year
  Sex: Female

DRUGS (20)
  1. IBRANCE [Suspect]
     Active Substance: PALBOCICLIB
     Indication: Breast cancer female
     Route: 048
     Dates: start: 20250506
  2. IBRANCE [Suspect]
     Active Substance: PALBOCICLIB
  3. ALBUTEROL SULFATE [Concomitant]
     Active Substance: ALBUTEROL SULFATE
  4. AMLODIPINE [Concomitant]
     Active Substance: AMLODIPINE BESYLATE
  5. ARNUITY ELLIPTA [Concomitant]
     Active Substance: FLUTICASONE FUROATE
     Route: 055
  6. AZELASTINE HYDROCHLORIDE [Concomitant]
     Active Substance: AZELASTINE HYDROCHLORIDE
     Route: 045
  7. CALTRATE WITH VITAMIN D [Concomitant]
     Active Substance: CALCIUM CARBONATE\CHOLECALCIFEROL
  8. FLUTICASONE PROPIONATE [Concomitant]
     Active Substance: FLUTICASONE PROPIONATE
     Route: 045
  9. DEXLANSOPRAZOLE [Concomitant]
     Active Substance: DEXLANSOPRAZOLE
  10. EPIPEN [Concomitant]
     Active Substance: EPINEPHRINE
  11. FULVESTRANT [Concomitant]
     Active Substance: FULVESTRANT
  12. ITOVEBI [Concomitant]
     Active Substance: INAVOLISIB
  13. ROSUVASTATIN [Concomitant]
     Active Substance: ROSUVASTATIN
  14. LEVOTHYROXINE [Concomitant]
     Active Substance: LEVOTHYROXINE
  15. ALBUTEROL [Concomitant]
     Active Substance: ALBUTEROL
  16. AZELASTINE [Concomitant]
     Active Substance: AZELASTINE
  17. CALTRATE [Concomitant]
     Active Substance: CALCIUM CARBONATE
  18. FLUTICASONE [Concomitant]
     Active Substance: FLUTICASONE
  19. EPIPEN [Concomitant]
     Active Substance: EPINEPHRINE
  20. LIPO FLAVONOID PROACTIVE DAILY EAR HEALTH [Concomitant]

REACTIONS (15)
  - Alopecia [Not Recovered/Not Resolved]
  - Laboratory test abnormal [Unknown]
  - Renal function test abnormal [Not Recovered/Not Resolved]
  - Dehydration [Not Recovered/Not Resolved]
  - Blood glucose increased [Recovering/Resolving]
  - Tinnitus [Not Recovered/Not Resolved]
  - Asthenia [Not Recovered/Not Resolved]
  - Diarrhoea [Recovered/Resolved]
  - Fatigue [Not Recovered/Not Resolved]
  - White blood cell count decreased [Not Recovered/Not Resolved]
  - Neutrophil count decreased [Not Recovered/Not Resolved]
  - Haemoglobin decreased [Not Recovered/Not Resolved]
  - Retching [Not Recovered/Not Resolved]
  - Dizziness [Not Recovered/Not Resolved]
  - Gait disturbance [Not Recovered/Not Resolved]

NARRATIVE: CASE EVENT DATE: 20250101
